FAERS Safety Report 4590877-1 (Version None)
Quarter: 2005Q1

REPORT INFORMATION
  Report Type: 
  Country: None (occurrence: None)
  Receive Date: 20050225
  Receipt Date: 20040608
  Transmission Date: 20050727
  Serious: No
  Sender: FDA-Public Use
  Company Number: US-GLAXOSMITHKLINE-A0513811A

PATIENT
  Age: 61 Year
  Sex: Male
  Weight: 75 kg

DRUGS (6)
  1. ZIAGEN [Suspect]
     Indication: HIV INFECTION
     Dosage: 300MG TWICE PER DAY
     Route: 048
     Dates: start: 20020501
  2. HUMULIN N [Concomitant]
     Dosage: 25UNIT TWICE PER DAY
     Route: 058
     Dates: start: 20010701
  3. VIDEX EC [Concomitant]
     Dosage: 400MG PER DAY
     Route: 048
  4. D4T [Concomitant]
     Dosage: 30MG TWICE PER DAY
     Route: 048
  5. VITAMINS [Concomitant]
     Route: 048
  6. HYDROCHLOROTHIAZIDE [Concomitant]
     Dosage: 25MG PER DAY
     Route: 048

REACTIONS (1)
  - URTICARIA [None]
